FAERS Safety Report 17020375 (Version 3)
Quarter: 2020Q1

REPORT INFORMATION
  Report Type: Report from Study
  Country: ES (occurrence: ES)
  Receive Date: 20191112
  Receipt Date: 20200116
  Transmission Date: 20200409
  Serious: Yes (Hospitalization)
  Sender: FDA-Public Use
  Company Number: ES-ROCHE-2345887

PATIENT
  Age: 57 Year
  Sex: Female
  Weight: 76 kg

DRUGS (6)
  1. ATEZOLIZUMAB. [Suspect]
     Active Substance: ATEZOLIZUMAB
     Indication: TRIPLE NEGATIVE BREAST CANCER
     Dosage: DATE OF MOST RECENT DOSE OF ATEZOLIZUMAB PRIOR TO AE ONSET: 19/JUN/2019?EVERY 2 WEEKS ON DAYS 1 AND
     Route: 042
     Dates: start: 20170316
  2. NATECAL D [Concomitant]
     Active Substance: CALCIUM CARBONATE\CHOLECALCIFEROL
     Dosage: PROPHYLAXIS CALCIUM INPUT
     Route: 048
     Dates: start: 20180124
  3. DENOSUMAB [Concomitant]
     Active Substance: DENOSUMAB
     Indication: METASTASES TO BONE
     Route: 042
     Dates: start: 20181113
  4. COBIMETINIB. [Suspect]
     Active Substance: COBIMETINIB
     Indication: TRIPLE NEGATIVE BREAST CANCER
     Dosage: ONCE A DAY, ON DAY 3 THOUGH DAY 23 OF EACH 28 DAY TREATMENT CYCLE (AS PER PROTOCOL)
     Route: 048
     Dates: start: 20170318
  5. PACLITAXEL. [Suspect]
     Active Substance: PACLITAXEL
     Indication: TRIPLE NEGATIVE BREAST CANCER
     Dosage: DATE OF MOST RECENT DOSE OF PACLITAXEL PRIOR TO AE ONSET: 19/JUN/2019 (160 MG)?ON DAY 1, DAY 8, AND
     Route: 042
     Dates: start: 20170316
  6. LYRICA [Concomitant]
     Active Substance: PREGABALIN
     Indication: PARAESTHESIA
     Route: 048
     Dates: start: 20170706

REACTIONS (2)
  - Abdominal pain [Recovered/Resolved]
  - Mastitis [Recovered/Resolved]

NARRATIVE: CASE EVENT DATE: 20190622
